FAERS Safety Report 9684308 (Version 1)
Quarter: 2013Q4

REPORT INFORMATION
  Report Type: Spontaneous
  Country: US (occurrence: US)
  Receive Date: 20131112
  Receipt Date: 20131112
  Transmission Date: 20140711
  Serious: Yes (Hospitalization, Other)
  Sender: FDA-Public Use
  Company Number: US-BAXTER-2013BAX043895

PATIENT
  Sex: Male

DRUGS (4)
  1. DIANEAL LOW CALCIUM [Suspect]
     Indication: RENAL FAILURE CHRONIC
     Route: 033
     Dates: start: 201010
  2. DIANEAL LOW CALCIUM [Suspect]
     Route: 033
     Dates: start: 201010
  3. DIANEAL LOW CALCIUM [Suspect]
     Indication: RENAL FAILURE CHRONIC
     Route: 033
     Dates: start: 201010
  4. DIANEAL LOW CALCIUM [Suspect]
     Route: 033
     Dates: start: 201010

REACTIONS (4)
  - Ankle fracture [Recovering/Resolving]
  - Haematuria [Recovered/Resolved]
  - Fall [Recovered/Resolved]
  - Hypertension [Recovering/Resolving]
